FAERS Safety Report 17578613 (Version 1)
Quarter: 2020Q1

REPORT INFORMATION
  Report Type: Spontaneous
  Country: US (occurrence: US)
  Receive Date: 20200324
  Receipt Date: 20200324
  Transmission Date: 20200409
  Serious: Yes (Death, Hospitalization, Other)
  Sender: FDA-Public Use
  Company Number: US-ENDO PHARMACEUTICALS INC-2020-001322

PATIENT
  Age: 65 Year
  Sex: Male

DRUGS (23)
  1. HYDROCODONE BITARTRATE AND ACETAMINOPHEN [Suspect]
     Active Substance: ACETAMINOPHEN\HYDROCODONE BITARTRATE
     Indication: ARTHRALGIA
     Dosage: UNK UNKNOWN, UNKNOWN
     Route: 065
     Dates: start: 20141201
  2. TRAMADOL HYDROCHLORIDE. [Suspect]
     Active Substance: TRAMADOL HYDROCHLORIDE
     Dosage: 1 DF, QID
     Route: 048
     Dates: start: 20170609
  3. TYLENOL [Suspect]
     Active Substance: ACETAMINOPHEN
     Indication: ARTHRALGIA
     Dosage: 1000 MG, TID
     Route: 065
     Dates: start: 20161216
  4. VOLTAREN [Suspect]
     Active Substance: DICLOFENAC SODIUM
     Indication: PRODUCT USED FOR UNKNOWN INDICATION
     Dosage: UNK UNKNOWN, UNKNOWN
     Route: 065
     Dates: start: 20161026
  5. PERCOCET [Suspect]
     Active Substance: ACETAMINOPHEN\OXYCODONE HYDROCHLORIDE
     Dosage: 1-2, DF, EVERY 4-6 HOURS AS NEEDED
     Route: 048
     Dates: start: 20140519
  6. HYDROCODONE BITARTRATE AND ACETAMINOPHEN [Suspect]
     Active Substance: ACETAMINOPHEN\HYDROCODONE BITARTRATE
     Indication: ARTHRALGIA
     Dosage: 1 DF, QHS PRN
     Route: 048
     Dates: start: 201401, end: 2014
  7. HYDROCODONE BITARTRATE AND ACETAMINOPHEN [Suspect]
     Active Substance: ACETAMINOPHEN\HYDROCODONE BITARTRATE
     Dosage: 1 DF, BID WITH MEALS PRN
     Route: 048
     Dates: start: 20160211
  8. HYDROCODONE BITARTRATE AND ACETAMINOPHEN [Suspect]
     Active Substance: ACETAMINOPHEN\HYDROCODONE BITARTRATE
     Dosage: 1 DF, BID WITH MEALS, PRN
     Route: 048
     Dates: start: 20160822, end: 20170609
  9. VICODIN [Suspect]
     Active Substance: ACETAMINOPHEN\HYDROCODONE BITARTRATE
     Dosage: 1 DF, EVERY 4-6 HOURS AS NEEDED
     Route: 065
     Dates: start: 20130524, end: 20130718
  10. VICODIN [Suspect]
     Active Substance: ACETAMINOPHEN\HYDROCODONE BITARTRATE
     Dosage: 1 DF, QHS BEFORE BED AS NEEDED
     Route: 065
     Dates: start: 20131107
  11. PERCOCET [Suspect]
     Active Substance: ACETAMINOPHEN\OXYCODONE HYDROCHLORIDE
     Indication: ARTHRALGIA
     Dosage: 1-2, DF, EVERY 6-8 HOURS AS NEEDED
     Route: 048
     Dates: start: 201304
  12. TRAMADOL HYDROCHLORIDE. [Suspect]
     Active Substance: TRAMADOL HYDROCHLORIDE
     Indication: ARTHRALGIA
     Dosage: 1 DF, EVERY 4-6 HOURS, PRN
     Route: 048
     Dates: start: 20120518
  13. MORPHINE SULFATE. [Suspect]
     Active Substance: MORPHINE SULFATE
     Indication: ARTHRALGIA
     Dosage: 1 DF, TID
     Route: 048
     Dates: start: 20170707, end: 201708
  14. VICODIN [Suspect]
     Active Substance: ACETAMINOPHEN\HYDROCODONE BITARTRATE
     Indication: ARTHRALGIA
     Dosage: UNK UNKNOWN, UNKNOWN
     Route: 065
     Dates: start: 20120518
  15. MOBIC [Suspect]
     Active Substance: MELOXICAM
     Indication: ARTHRALGIA
     Dosage: 1 DF, OD FOR 3-4 WEEKS AND THEN PRN
     Route: 065
     Dates: start: 20130809
  16. MORPHINE SULFATE. [Suspect]
     Active Substance: MORPHINE SULFATE
     Indication: ARTHRALGIA
     Dosage: 1 DF, TID
     Route: 048
     Dates: start: 20170804
  17. MS CONTIN [Suspect]
     Active Substance: MORPHINE SULFATE
     Indication: ARTHRALGIA
     Dosage: 1 DF, BID
     Route: 065
     Dates: start: 201706, end: 201707
  18. NEURONTIN [Suspect]
     Active Substance: GABAPENTIN
     Indication: NEUROPATHY PERIPHERAL
     Dosage: 200 MG, BID AND 400MG AT NIGHT
     Route: 065
  19. HYDROCODONE BITARTRATE AND ACETAMINOPHEN [Suspect]
     Active Substance: ACETAMINOPHEN\HYDROCODONE BITARTRATE
     Dosage: 1 DF, TID WITH MEALS PRN
     Route: 048
     Dates: start: 20160711, end: 2016
  20. MOBIC [Suspect]
     Active Substance: MELOXICAM
     Dosage: 7.5 MG, OD
     Route: 065
     Dates: start: 20170120
  21. CYMBALTA [Suspect]
     Active Substance: DULOXETINE HYDROCHLORIDE
     Indication: PRODUCT USED FOR UNKNOWN INDICATION
     Dosage: UNK UNKNOWN, UNKNOWN
     Route: 065
     Dates: start: 20161226
  22. NEURONTIN [Suspect]
     Active Substance: GABAPENTIN
     Dosage: 400 MG, TID
     Route: 065
     Dates: start: 20161216
  23. NEURONTIN [Suspect]
     Active Substance: GABAPENTIN
     Dosage: 600 MG, TID
     Route: 065

REACTIONS (21)
  - Respiratory failure [Unknown]
  - Pneumonia [Unknown]
  - Respiratory acidosis [Unknown]
  - Mental status changes [Unknown]
  - Acute respiratory failure [Unknown]
  - Metabolic encephalopathy [Unknown]
  - Overdose [Unknown]
  - Hypercapnia [Unknown]
  - Respiratory distress [Unknown]
  - Pneumothorax [Unknown]
  - Fall [Unknown]
  - Condition aggravated [Unknown]
  - Sinus bradycardia [Unknown]
  - Drug dependence [Unknown]
  - Cardiac arrest [Fatal]
  - Toxic encephalopathy [Unknown]
  - Cardiac failure congestive [Unknown]
  - Chronic obstructive pulmonary disease [Unknown]
  - Drug abuse [Unknown]
  - Acute kidney injury [Unknown]
  - Pain [Unknown]

NARRATIVE: CASE EVENT DATE: 2017
